FAERS Safety Report 19821557 (Version 2)
Quarter: 2022Q2

REPORT INFORMATION
  Report Type: Report from Study
  Country: US (occurrence: None)
  Receive Date: 20210913
  Receipt Date: 20220411
  Transmission Date: 20220721
  Serious: Yes (Other)
  Sender: FDA-Public Use
  Company Number: US-ROCHE-2903231

PATIENT

DRUGS (1)
  1. ALTEPLASE [Suspect]
     Active Substance: ALTEPLASE
     Indication: COVID-19
     Route: 065

REACTIONS (2)
  - Device kink [Unknown]
  - Aspiration [Unknown]

NARRATIVE: CASE EVENT DATE: 20201016
